FAERS Safety Report 25245423 (Version 1)
Quarter: 2025Q2

REPORT INFORMATION
  Report Type: Spontaneous
  Country: US (occurrence: None)
  Receive Date: 20250426
  Receipt Date: 20250426
  Transmission Date: 20250716
  Serious: Yes (Hospitalization)
  Sender: FDA-CTU
  Company Number: None

PATIENT
  Age: 31 Year
  Sex: Female
  Weight: 52.65 kg

DRUGS (3)
  1. ICY HOT MEDICATED NO MESS APPLICATOR [Suspect]
     Active Substance: MENTHOL
     Indication: Muscle discomfort
     Dosage: AT BEDTIME TOPICAL
     Route: 061
     Dates: start: 20250401, end: 20250421
  2. Dermatologists [Concomitant]
  3. Aloe vera Aquaphor [Concomitant]

REACTIONS (4)
  - Burns second degree [None]
  - Blister [None]
  - Emotional distress [None]
  - Skin injury [None]

NARRATIVE: CASE EVENT DATE: 20250421
